FAERS Safety Report 5717761-1 (Version None)
Quarter: 2008Q2

REPORT INFORMATION
  Report Type: 
  Country: None (occurrence: None)
  Receive Date: 20080424
  Receipt Date: 20080421
  Transmission Date: 20081010
  Serious: No
  Sender: FDA-Public Use
  Company Number: APP200800316

PATIENT
  Sex: Male
  Weight: 94.8018 kg

DRUGS (4)
  1. HEPARIN SODIUM INJECTION [Suspect]
     Indication: CATHETERISATION CARDIAC
     Dosage: SEE IMAGE
     Route: 042
     Dates: start: 20080401
  2. HEPARIN SODIUM INJECTION [Suspect]
     Indication: CATHETERISATION CARDIAC
     Dosage: SEE IMAGE
     Route: 042
     Dates: start: 20080401
  3. HEPARIN SODIUM INJECTION [Suspect]
     Indication: CATHETERISATION CARDIAC
     Dosage: SEE IMAGE
     Route: 042
     Dates: start: 20080401
  4. COUMADIN [Concomitant]

REACTIONS (1)
  - DRUG EFFECT DECREASED [None]
